FAERS Safety Report 13942332 (Version 1)
Quarter: 2017Q3

REPORT INFORMATION
  Report Type: Spontaneous
  Country: US (occurrence: US)
  Receive Date: 20170907
  Receipt Date: 20170907
  Transmission Date: 20171127
  Serious: Yes (Other)
  Sender: FDA-Public Use
  Company Number: None

PATIENT
  Age: 56 Year
  Sex: Female
  Weight: 60.75 kg

DRUGS (1)
  1. CEFTRIAXONE. [Suspect]
     Active Substance: CEFTRIAXONE
     Indication: LYME DISEASE
     Route: 042
     Dates: start: 20170905, end: 20170905

REACTIONS (3)
  - Muscle spasms [None]
  - Middle insomnia [None]
  - Insomnia [None]

NARRATIVE: CASE EVENT DATE: 20170905
